FAERS Safety Report 4644409-X (Version None)
Quarter: 2005Q2

REPORT INFORMATION
  Report Type: 
  Country: None (occurrence: None)
  Receive Date: 20050331
  Receipt Date: 20041208
  Transmission Date: 20051028
  Serious: No
  Sender: FDA-Public Use
  Company Number: 04P-163-0282600-00

PATIENT
  Age: 61 Year
  Sex: Female

DRUGS (10)
  1. HUMIRA [Suspect]
     Indication: RHEUMATOID ARTHRITIS
     Dosage: 40 MG, 1 IN 2 WK, SUBCUTANEOUS
     Route: 058
     Dates: start: 20040901, end: 20041124
  2. ISOSORBIDE MONONITRATE [Concomitant]
  3. OMEPRAZOLE [Concomitant]
  4. FEXOFENADINE HYDROCHLORIDE [Concomitant]
  5. BENAZEPRIL HCL [Concomitant]
  6. DIGOXIN [Concomitant]
  7. LEVOTHYROXINE SODIUM [Concomitant]
  8. HYDROCHLOROTHIAZIDE [Concomitant]
  9. HYDROXYCHLOROQUINE PHOSPHATE [Concomitant]
  10. HYDROXYCHLOROQUINE PHOSPHATE [Concomitant]

REACTIONS (2)
  - PRURITUS [None]
  - RASH [None]
